FAERS Safety Report 17922599 (Version 6)
Quarter: 2021Q3

REPORT INFORMATION
  Report Type: Report from Study
  Country: BR (occurrence: BR)
  Receive Date: 20200622
  Receipt Date: 20210817
  Transmission Date: 20211014
  Serious: Yes (Hospitalization, Other)
  Sender: FDA-Public Use
  Company Number: PHHY2019BR104059

PATIENT
  Age: 60 Year
  Sex: Male
  Weight: 63 kg

DRUGS (12)
  1. COSENTYX [Suspect]
     Active Substance: SECUKINUMAB
     Dosage: 150 MG, QMO
     Route: 058
     Dates: start: 20171108
  2. COSENTYX [Suspect]
     Active Substance: SECUKINUMAB
     Dosage: UNK
     Route: 065
     Dates: start: 20200228
  3. COSENTYX [Suspect]
     Active Substance: SECUKINUMAB
     Dosage: UNK
     Route: 065
     Dates: start: 20210728
  4. GLUCOSAMINE [Concomitant]
     Active Substance: GLUCOSAMINE
     Indication: ANKYLOSING SPONDYLITIS
     Dosage: 1 DF, QD (EFFERVESCENT SACHET) (1 SACHET (1500MG GLUCOSAMINE+1200MG CODIENE)
     Route: 048
     Dates: start: 201711
  5. COSENTYX [Suspect]
     Active Substance: SECUKINUMAB
     Dosage: 150 MG, QMO (1 AMPOULE)
     Route: 058
     Dates: start: 201811
  6. COSENTYX [Suspect]
     Active Substance: SECUKINUMAB
     Dosage: UNK
     Route: 065
     Dates: start: 20200528
  7. COSENTYX [Suspect]
     Active Substance: SECUKINUMAB
     Dosage: UNK
     Route: 065
     Dates: start: 20201128
  8. COSENTYX [Suspect]
     Active Substance: SECUKINUMAB
     Indication: ANKYLOSING SPONDYLITIS
     Dosage: 150 MG
     Route: 065
     Dates: start: 20171107
  9. COSENTYX [Suspect]
     Active Substance: SECUKINUMAB
     Dosage: 300 MG (2 PENS)
     Route: 065
     Dates: start: 2020
  10. COSENTYX [Suspect]
     Active Substance: SECUKINUMAB
     Dosage: 150 MG, ONCE EVERY 15 DAYS
     Route: 065
     Dates: start: 20210114
  11. COSENTYX [Suspect]
     Active Substance: SECUKINUMAB
     Dosage: UNK
     Route: 065
     Dates: start: 20190513, end: 201910
  12. COSENTYX [Suspect]
     Active Substance: SECUKINUMAB
     Dosage: UNK
     Route: 065
     Dates: start: 20201028

REACTIONS (21)
  - Abdominal pain [Unknown]
  - Gait disturbance [Recovering/Resolving]
  - Biliary colic [Recovered/Resolved]
  - Pain [Unknown]
  - Spinal pain [Not Recovered/Not Resolved]
  - Multiple sclerosis [Unknown]
  - Crepitations [Recovering/Resolving]
  - Abdominal discomfort [Unknown]
  - Peripheral swelling [Recovering/Resolving]
  - Muscle spasms [Recovering/Resolving]
  - Mass [Recovering/Resolving]
  - Product storage error [Unknown]
  - Neck pain [Not Recovered/Not Resolved]
  - Back pain [Not Recovered/Not Resolved]
  - Pain in extremity [Recovering/Resolving]
  - Musculoskeletal stiffness [Recovering/Resolving]
  - Impaired driving ability [Recovering/Resolving]
  - Inappropriate schedule of product administration [Recovered/Resolved]
  - Cholelithiasis [Recovered/Resolved]
  - Drug ineffective [Recovering/Resolving]
  - Ankylosing spondylitis [Unknown]

NARRATIVE: CASE EVENT DATE: 201810
